FAERS Safety Report 10955932 (Version 1)
Quarter: 2015Q1

REPORT INFORMATION
  Report Type: Report from Study
  Country: GB (occurrence: GB)
  Receive Date: 20150326
  Receipt Date: 20150326
  Transmission Date: 20150721
  Serious: Yes (Other)
  Sender: FDA-Public Use
  Company Number: GB-ROCHE-1555574

PATIENT

DRUGS (1)
  1. TENECTEPLASE [Suspect]
     Active Substance: TENECTEPLASE
     Indication: ISCHAEMIC STROKE
     Dosage: 0.25 MG PER KG, TO A MAXIMUM 25 MG AS A SINGLE BOLUS.
     Route: 040

REACTIONS (2)
  - Off label use [Unknown]
  - Angioedema [Unknown]
